FAERS Safety Report 16431692 (Version 3)
Quarter: 2019Q2

REPORT INFORMATION
  Report Type: Spontaneous
  Country: GT (occurrence: GT)
  Receive Date: 20190614
  Receipt Date: 20190621
  Transmission Date: 20190711
  Serious: Yes (Other)
  Sender: FDA-Public Use
  Company Number: GT-PROVELL PHARMACEUTICALS-2068229

PATIENT
  Sex: Female

DRUGS (2)
  1. EUTHYROX [Suspect]
     Active Substance: LEVOTHYROXINE SODIUM
     Indication: PRODUCT USED FOR UNKNOWN INDICATION
  2. EUTHYROX [Suspect]
     Active Substance: LEVOTHYROXINE SODIUM

REACTIONS (15)
  - Neck mass [None]
  - Cough [None]
  - Dysphonia [Not Recovered/Not Resolved]
  - Menorrhagia [None]
  - Neck pain [None]
  - Fatigue [None]
  - Somnolence [None]
  - Gastric disorder [None]
  - Muscle spasms [None]
  - Papillary thyroid cancer [None]
  - Pain in extremity [None]
  - Dysphagia [None]
  - Dyspnoea [None]
  - Weight increased [None]
  - Decreased appetite [None]
